FAERS Safety Report 20092664 (Version 1)
Quarter: 2021Q4

REPORT INFORMATION
  Report Type: Spontaneous
  Country: GR (occurrence: GR)
  Receive Date: 20211120
  Receipt Date: 20211120
  Transmission Date: 20220303
  Serious: Yes (Life-Threatening, Hospitalization, Other)
  Sender: FDA-Public Use
  Company Number: GR-EPICPHARMA-GR-2021EPCLIT01203

PATIENT
  Age: 72 Year
  Sex: Female

DRUGS (2)
  1. AMLODIPINE BESYLATE [Suspect]
     Active Substance: AMLODIPINE BESYLATE
     Indication: Product used for unknown indication
     Route: 048
  2. DEXTROSE [Suspect]
     Active Substance: DEXTROSE
     Indication: Diabetes mellitus management
     Route: 042

REACTIONS (7)
  - Shock [Recovered/Resolved]
  - Mental status changes [Recovered/Resolved]
  - Vasoplegia syndrome [Recovered/Resolved]
  - Acute pulmonary oedema [Recovered/Resolved]
  - Toxicity to various agents [Recovered/Resolved]
  - Overdose [Recovered/Resolved]
  - Prescription drug used without a prescription [Unknown]

NARRATIVE: CASE EVENT DATE: 20200101
